FAERS Safety Report 25230145 (Version 1)
Quarter: 2025Q2

REPORT INFORMATION
  Report Type: Spontaneous
  Country: GR (occurrence: GR)
  Receive Date: 20250423
  Receipt Date: 20250423
  Transmission Date: 20250716
  Serious: Yes (Other)
  Sender: PFIZER
  Company Number: GR-PFIZER INC-PV202500048527

PATIENT
  Age: 38 Year
  Sex: Male

DRUGS (1)
  1. XELJANZ [Suspect]
     Active Substance: TOFACITINIB CITRATE
     Indication: Tumour necrosis factor receptor-associated periodic syndrome

REACTIONS (3)
  - Cerebral venous thrombosis [Unknown]
  - Off label use [Unknown]
  - Drug ineffective for unapproved indication [Unknown]
